FAERS Safety Report 6583587-2 (Version None)
Quarter: 2010Q1

REPORT INFORMATION
  Report Type: 
  Country: None (occurrence: None)
  Receive Date: 20100216
  Receipt Date: 20100202
  Transmission Date: 20100710
  Serious: Yes (Other)
  Sender: FDA-Public Use
  Company Number: DE-MYLANLABS-2009S1000559

PATIENT
  Age: 70 Year
  Sex: Male

DRUGS (19)
  1. CARVEDILOL [Suspect]
     Indication: HYPERTENSION
     Route: 048
  2. DIGITOXIN INJ [Suspect]
     Indication: CARDIAC FAILURE
     Route: 048
     Dates: start: 20080625, end: 20080720
  3. EBRANTIL /00631801/ [Suspect]
     Indication: HYPERTENSION
     Route: 048
  4. EINSALPHA [Suspect]
     Indication: HYPERPARATHYROIDISM
     Route: 048
     Dates: start: 20080520
  5. LOCOL [Suspect]
     Indication: HYPERCHOLESTEROLAEMIA
     Route: 048
  6. CLOPIDOGREL SULFATE [Suspect]
     Indication: HYPERTENSION
     Route: 048
  7. MOXONIDINE [Concomitant]
     Indication: HYPERTENSION
     Route: 048
  8. NEORECORMON [Concomitant]
     Indication: ANAEMIA
     Route: 058
  9. LOCOL [Concomitant]
     Route: 048
  10. EINSALPHA [Concomitant]
     Route: 048
     Dates: start: 20080520
  11. TORSEMIDE [Concomitant]
     Indication: HYPERTENSION
     Route: 048
  12. DIOVANE [Concomitant]
     Indication: HYPERTENSION
     Route: 048
  13. METAMIZOLE [Concomitant]
     Indication: OSTEOARTHRITIS
     Route: 048
     Dates: start: 19900101
  14. PANTOZOL [Concomitant]
     Indication: HELICOBACTER GASTRITIS
     Route: 048
  15. ASS [Concomitant]
     Indication: CARDIOVASCULAR EVENT PROPHYLAXIS
     Route: 048
     Dates: start: 20000101
  16. PLAVIX [Concomitant]
     Indication: CARDIOVASCULAR EVENT PROPHYLAXIS
     Dates: start: 20060401, end: 20080720
  17. ALLOPURINOL [Concomitant]
     Indication: HYPERURICAEMIA
     Route: 048
  18. ACETOLYT /00832101/ [Concomitant]
     Indication: ACIDOSIS
     Dates: end: 20080720
  19. XIPAMIDE [Concomitant]
     Indication: HYPERTENSION
     Route: 048
     Dates: start: 20080625

REACTIONS (8)
  - ANAEMIA [None]
  - CARDIOACTIVE DRUG LEVEL INCREASED [None]
  - DRUG INTERACTION [None]
  - GENERAL PHYSICAL CONDITION ABNORMAL [None]
  - INTERNATIONAL NORMALISED RATIO INCREASED [None]
  - LIVER FUNCTION TEST ABNORMAL [None]
  - NAUSEA [None]
  - RENAL FUNCTION TEST ABNORMAL [None]
